FAERS Safety Report 15635208 (Version 1)
Quarter: 2018Q4

REPORT INFORMATION
  Report Type: Spontaneous
  Country: HR (occurrence: HR)
  Receive Date: 20181120
  Receipt Date: 20181120
  Transmission Date: 20190205
  Serious: Yes (Hospitalization)
  Sender: FDA-Public Use
  Company Number: HR-SCIEGEN PHARMACEUTICALS INC-2018SCILIT00737

PATIENT

DRUGS (5)
  1. QUETIAPINE. [Suspect]
     Active Substance: QUETIAPINE
     Dosage: 200 MG, 1/2, 1/2, 1 TABLET
     Route: 065
  2. FLUPHENZINE [Suspect]
     Active Substance: FLUPHENAZINE
     Dosage: 2.5 MG TWICE DAILY
     Route: 065
  3. QUETIAPINE. [Suspect]
     Active Substance: QUETIAPINE
     Indication: SCHIZOPHRENIA
     Dosage: UNK, FOR THE LAST 12 YEARS
     Route: 065
  4. CLONAZEPAM. [Concomitant]
     Active Substance: CLONAZEPAM
     Indication: PRODUCT USED FOR UNKNOWN INDICATION
     Dosage: 2 MG DAILY
     Route: 051
  5. FLUPHENZINE [Suspect]
     Active Substance: FLUPHENAZINE
     Indication: DISEASE PROGRESSION
     Dosage: 2.5 MG THRICE DAILY
     Route: 065

REACTIONS (1)
  - Drug-induced liver injury [Recovering/Resolving]
